FAERS Safety Report 7907348-4 (Version None)
Quarter: 2011Q4

REPORT INFORMATION
  Report Type: 
  Country: None (occurrence: None)
  Receive Date: 20111110
  Receipt Date: 20111020
  Transmission Date: 20120403
  Serious: Yes (Other)
  Sender: FDA-Public Use
  Company Number: JP-GLAXOSMITHKLINE-B0761509A

PATIENT
  Sex: Female

DRUGS (2)
  1. HYCAMTIN [Suspect]
     Indication: OVARIAN CANCER
     Dosage: 1.25MGM2 PER DAY
     Route: 042
     Dates: start: 20110701
  2. STEROID [Concomitant]
     Route: 065

REACTIONS (1)
  - VISUAL ACUITY REDUCED [None]
